FAERS Safety Report 16257714 (Version 1)
Quarter: 2019Q2

REPORT INFORMATION
  Report Type: Spontaneous
  Country: FR (occurrence: FR)
  Receive Date: 20190430
  Receipt Date: 20190430
  Transmission Date: 20190711
  Serious: Yes (Hospitalization)
  Sender: FDA-Public Use
  Company Number: FR-TEVA-2019-FR-1042498

PATIENT
  Age: 81 Year
  Sex: Male
  Weight: 61 kg

DRUGS (9)
  1. VALSARTAN (VALSARTAN) [Suspect]
     Active Substance: VALSARTAN
     Indication: HYPERTENSION
     Dosage: 1 DOSAGE FORMS DAILY;
     Route: 048
     Dates: start: 2012, end: 20161209
  2. PRAVASTATINE SODIQUE [Concomitant]
     Active Substance: PRAVASTATIN SODIUM
  3. GALVUS [Concomitant]
     Active Substance: VILDAGLIPTIN
  4. BISOPROLOL (HEMIFUMARATE DE) [Concomitant]
     Active Substance: BISOPROLOL FUMARATE
  5. METFORMINE ARROW 500 MG, COMPRIM? PELLICUL? [Suspect]
     Active Substance: METFORMIN HYDROCHLORIDE
     Indication: TYPE 2 DIABETES MELLITUS
     Dosage: 1 DOSAGE FORMS DAILY;
     Route: 048
     Dates: start: 201205, end: 20161209
  6. BROMAZEPAM [Concomitant]
     Active Substance: BROMAZEPAM
  7. PREVISCAN [Concomitant]
  8. LASILIX [Concomitant]
     Active Substance: FUROSEMIDE
  9. NOVONORM [Concomitant]
     Active Substance: REPAGLINIDE

REACTIONS (1)
  - Acute kidney injury [Recovered/Resolved]

NARRATIVE: CASE EVENT DATE: 20161209
